FAERS Safety Report 9197491 (Version 2)
Quarter: 2013Q2

REPORT INFORMATION
  Report Type: Spontaneous
  Country: ES (occurrence: ES)
  Receive Date: 20130328
  Receipt Date: 20130404
  Transmission Date: 20140414
  Serious: Yes (Death, Other)
  Sender: FDA-Public Use
  Company Number: ES-PFIZER INC-2013096160

PATIENT
  Sex: 0

DRUGS (4)
  1. SILDENAFIL CITRATE [Suspect]
     Indication: PULMONARY HYPERTENSION
     Dosage: UNK
     Route: 048
  2. NITRIC OXIDE [Suspect]
     Indication: PULMONARY HYPERTENSION
     Dosage: UNK
     Route: 045
  3. PROSTACYCLIN [Suspect]
     Indication: PULMONARY HYPERTENSION
     Dosage: UNK
     Route: 045
  4. BOSENTAN [Suspect]
     Indication: PULMONARY HYPERTENSION
     Dosage: UNK

REACTIONS (3)
  - Pulmonary oedema [Fatal]
  - Pulmonary haemorrhage [Fatal]
  - Off label use [Unknown]
